FAERS Safety Report 7285036-8 (Version None)
Quarter: 2011Q1

REPORT INFORMATION
  Report Type: 
  Country: None (occurrence: None)
  Receive Date: 20110210
  Receipt Date: 20110120
  Transmission Date: 20110831
  Serious: No
  Sender: FDA-Public Use
  Company Number: US-B.I. PHARMACEUTICALS,INC./RIDGEFIELD-2011-BP-02355BP

PATIENT
  Age: 79 Year
  Sex: Female

DRUGS (1)
  1. MICARDIS [Suspect]
     Dosage: 20 MG
     Route: 048

REACTIONS (1)
  - JOINT SWELLING [None]
